FAERS Safety Report 9193245 (Version 1)
Quarter: 2013Q1

REPORT INFORMATION
  Report Type: Report from Study
  Country: US (occurrence: US)
  Receive Date: 20130327
  Receipt Date: 20130327
  Transmission Date: 20140127
  Serious: No
  Sender: FDA-Public Use
  Company Number: US-VERTEX PHARMACEUTICALS INC.-2013-004107

PATIENT
  Sex: Female
  Weight: 75 kg

DRUGS (8)
  1. VX-950 (TELAPREVIR) [Suspect]
     Indication: HEPATITIS C
     Dosage: 750 MG, UNK
     Route: 048
  2. RIBAPAK [Suspect]
     Indication: HEPATITIS C
     Dosage: 1000/DAY
  3. PEGASYS [Suspect]
  4. TRAMADOL HCL [Concomitant]
     Dosage: 100 MG, UNK
  5. WELCHOL [Concomitant]
     Dosage: 625 MG, UNK
  6. HYDROCHLOROTH [Concomitant]
     Dosage: 12.5 MG, UNK
  7. IBUPROFEN [Concomitant]
  8. NO DOZ PLUS [Concomitant]
     Dosage: 200 MG, UNK

REACTIONS (6)
  - Vision blurred [Unknown]
  - Insomnia [Unknown]
  - Blood potassium decreased [Unknown]
  - Rash erythematous [Unknown]
  - Platelet count decreased [Unknown]
  - Nausea [Unknown]
